FAERS Safety Report 17160084 (Version 4)
Quarter: 2020Q2

REPORT INFORMATION
  Report Type: Spontaneous
  Country: US (occurrence: US)
  Receive Date: 20191216
  Receipt Date: 20200528
  Transmission Date: 20200713
  Serious: No
  Sender: FDA-Public Use
  Company Number: US-SA-2019SA347349

PATIENT
  Age: 62 Year
  Sex: Male

DRUGS (8)
  1. DUPIXENT [Suspect]
     Active Substance: DUPILUMAB
     Dosage: 300 MG, QOW
     Route: 058
     Dates: start: 2019
  2. ATENOLOL. [Concomitant]
     Active Substance: ATENOLOL
     Route: 048
  3. HALOBETASOL [Concomitant]
     Active Substance: HALOBETASOL PROPIONATE
     Dosage: UNK UNK, BID
     Route: 061
  4. DUPIXENT [Suspect]
     Active Substance: DUPILUMAB
     Indication: PRODUCT USED FOR UNKNOWN INDICATION
     Dosage: 600 MG, 1X
     Route: 058
     Dates: start: 201911, end: 201911
  5. NIFEDIPINE. [Concomitant]
     Active Substance: NIFEDIPINE
     Route: 048
  6. MOMETASONE [Concomitant]
     Active Substance: MOMETASONE
     Dosage: UNK UNK, BID
     Route: 061
  7. PROTOPIC [Concomitant]
     Active Substance: TACROLIMUS
     Dosage: UNK UNK, BID
     Route: 061
  8. ULTRAVATE X [Concomitant]
     Active Substance: AMMONIUM LACTATE\HALOBETASOL PROPIONATE
     Dosage: UNK UNK, BID
     Route: 061

REACTIONS (7)
  - Eye swelling [Unknown]
  - Blepharitis [Unknown]
  - Rash [Recovering/Resolving]
  - Arthralgia [Unknown]
  - Eye pruritus [Unknown]
  - Ocular hyperaemia [Unknown]
  - Eye inflammation [Unknown]
